FAERS Safety Report 4722540-8 (Version None)
Quarter: 2005Q3

REPORT INFORMATION
  Report Type: 
  Country: None (occurrence: None)
  Receive Date: 20050722
  Receipt Date: 20050627
  Transmission Date: 20060218
  Serious: Yes (Other)
  Sender: FDA-Public Use
  Company Number: 2005UW09702

PATIENT
  Age: 23501 Day
  Sex: Female
  Weight: 74.4 kg

DRUGS (5)
  1. FASLODEX [Suspect]
     Indication: BREAST CANCER METASTATIC
     Dosage: 125 MG/2.5 ML
     Route: 030
     Dates: start: 20050531, end: 20050627
  2. MESALAMINE [Concomitant]
     Route: 048
     Dates: start: 20040325
  3. OMEPRAZOLE [Concomitant]
     Route: 048
     Dates: start: 20040617
  4. DICYCLOMINE [Concomitant]
     Route: 048
     Dates: start: 20040318
  5. ZOLEDRONIC ACID [Concomitant]
     Indication: BREAST CANCER METASTATIC
     Route: 042

REACTIONS (4)
  - CHEST DISCOMFORT [None]
  - COUGH [None]
  - DRUG HYPERSENSITIVITY [None]
  - DYSPNOEA [None]
